FAERS Safety Report 17693513 (Version 1)
Quarter: 2020Q2

REPORT INFORMATION
  Report Type: Spontaneous
  Country: AT (occurrence: AT)
  Receive Date: 20200422
  Receipt Date: 20200422
  Transmission Date: 20200714
  Serious: Yes (Death, Other)
  Sender: FDA-Public Use
  Company Number: NVSC2020AT107547

PATIENT
  Age: 3 Year
  Sex: Male

DRUGS (5)
  1. THIOTEPA. [Suspect]
     Active Substance: THIOTEPA
     Indication: EPENDYMOMA MALIGNANT
     Dosage: TANDEM HIGH-DOSE CHEMOTHERAPY (CARBOPLATIN/ETOPOSIDE, CYCLOPHOSPHAMIDE/THIOTEPA)
     Route: 065
  2. CARBOPLATIN. [Suspect]
     Active Substance: CARBOPLATIN
     Indication: EPENDYMOMA MALIGNANT
     Dosage: TANDEM HIGH-DOSE CHEMOTHERAPY (CARBOPLATIN/ETOPOSIDE, CYCLOPHOSPHAMIDE/THIOTEPA)
     Route: 065
  3. CYCLOPHOSPHAMIDE. [Suspect]
     Active Substance: CYCLOPHOSPHAMIDE
     Indication: EPENDYMOMA MALIGNANT
     Dosage: TANDEM HIGH-DOSE CHEMOTHERAPY (CARBOPLATIN/ETOPOSIDE, CYCLOPHOSPHAMIDE/THIOTEPA)
     Route: 065
  4. ETOPOSIDE. [Suspect]
     Active Substance: ETOPOSIDE
     Indication: EPENDYMOMA MALIGNANT
     Dosage: TANDEM HIGH-DOSE CHEMOTHERAPY (CARBOPLATIN/ETOPOSIDE, CYCLOPHOSPHAMIDE/THIOTEPA)
     Route: 065
  5. VINCRISTINE [Suspect]
     Active Substance: VINCRISTINE
     Indication: EPENDYMOMA MALIGNANT
     Dosage: MODIFIED HIT-SKK (MSKK; CYCLOPHOSPHAMIDE/VINCRISTINE, CARBOPLATIN/ETOPOSIDE)
     Route: 065

REACTIONS (2)
  - Malignant neoplasm progression [Fatal]
  - Product use in unapproved indication [Fatal]
